FAERS Safety Report 22186654 (Version 1)
Quarter: 2023Q2

REPORT INFORMATION
  Report Type: Spontaneous
  Country: US (occurrence: US)
  Receive Date: 20230407
  Receipt Date: 20230407
  Transmission Date: 20230721
  Serious: No
  Sender: FDA-Public Use
  Company Number: US-ELI_LILLY_AND_COMPANY-US202304001600

PATIENT
  Sex: Female

DRUGS (2)
  1. TALTZ [Suspect]
     Active Substance: IXEKIZUMAB
     Indication: Product used for unknown indication
     Dosage: UNK UNK, UNKNOWN
     Route: 065
  2. SKYRIZI [Suspect]
     Active Substance: RISANKIZUMAB-RZAA
     Indication: Psoriasis
     Dosage: UNK UNK, UNKNOWN
     Route: 058
     Dates: start: 20220316

REACTIONS (5)
  - Arthritis [Recovered/Resolved]
  - Psoriasis [Unknown]
  - Cellulitis [Recovered/Resolved]
  - Lacrimation increased [Unknown]
  - Urticaria [Unknown]
